FAERS Safety Report 9716223 (Version 1)
Quarter: 2013Q4

REPORT INFORMATION
  Report Type: Spontaneous
  Country: US (occurrence: US)
  Receive Date: 20131127
  Receipt Date: 20131127
  Transmission Date: 20140711
  Serious: Yes (Hospitalization)
  Sender: FDA-Public Use
  Company Number: US-ABBVIE-13P-163-1172956-00

PATIENT
  Age: 69 Year
  Sex: Female
  Weight: 99.88 kg

DRUGS (15)
  1. DEPAKOTE [Suspect]
     Indication: CONVULSION
     Dosage: AT BEDTIME
     Dates: end: 2010
  2. DEPAKOTE [Suspect]
     Indication: BIPOLAR DISORDER
     Dosage: AT BEDTIME
     Dates: start: 2010
  3. DEPAKOTE [Suspect]
     Indication: CONVULSION
  4. DEPAKOTE [Suspect]
     Indication: BIPOLAR DISORDER
  5. LEVOTHYROXINE [Concomitant]
     Indication: HYPOTHYROIDISM
  6. METFORMIN [Concomitant]
     Indication: DIABETES MELLITUS
  7. GLIPIZIDE [Concomitant]
     Indication: DIABETES MELLITUS
  8. LISINOPRIL [Concomitant]
     Indication: HYPERTENSION
  9. SIMVASTATIN [Concomitant]
     Indication: BLOOD CHOLESTEROL INCREASED
  10. ASPIRIN [Concomitant]
     Indication: PRODUCT USED FOR UNKNOWN INDICATION
  11. VITAMIN B12 [Concomitant]
     Indication: VITAMIN SUPPLEMENTATION
  12. VITAMIN B COMPLEX [Concomitant]
     Indication: VITAMIN SUPPLEMENTATION
  13. MULTIVITAMIN [Concomitant]
     Indication: VITAMIN SUPPLEMENTATION
  14. FISH OIL [Concomitant]
     Indication: BLOOD CHOLESTEROL INCREASED
  15. CALCIUM [Concomitant]
     Indication: MINERAL SUPPLEMENTATION

REACTIONS (5)
  - Wound [Recovered/Resolved]
  - Fall [Recovered/Resolved]
  - Weight bearing difficulty [Recovered/Resolved]
  - Gout [Recovered/Resolved]
  - Skin fissures [Recovered/Resolved]
